FAERS Safety Report 5706428-1 (Version None)
Quarter: 2008Q2

REPORT INFORMATION
  Report Type: 
  Country: None (occurrence: None)
  Receive Date: 20080415
  Receipt Date: 20080409
  Transmission Date: 20081010
  Serious: Yes (Death)
  Sender: FDA-Public Use
  Company Number: JP-ALLERGAN-0709029US

PATIENT
  Sex: Male

DRUGS (1)
  1. BOTOX [Suspect]
     Indication: TORTICOLLIS
     Dosage: 25 UNITS, SINGLE
     Route: 030
     Dates: start: 20050113, end: 20050113

REACTIONS (2)
  - PYREXIA [None]
  - SUDDEN DEATH [None]
